FAERS Safety Report 10091612 (Version 1)
Quarter: 2014Q2

REPORT INFORMATION
  Report Type: Spontaneous
  Country: US (occurrence: US)
  Receive Date: 20140421
  Receipt Date: 20140421
  Transmission Date: 20141212
  Serious: No
  Sender: FDA-Public Use
  Company Number: US-TEVA-475945USA

PATIENT
  Sex: Male
  Weight: 94.89 kg

DRUGS (6)
  1. QNASL [Suspect]
     Indication: HYPERSENSITIVITY
     Dosage: ONE SPRAY IN EACH NOSTRIL IN THE MORNING AND EVENING
     Route: 045
     Dates: start: 20140412
  2. FLOVENT [Concomitant]
     Indication: ASTHMA
  3. ALBUTEROL [Concomitant]
     Indication: ASTHMA
  4. ASPIRIN [Concomitant]
     Indication: CARDIAC DISORDER
  5. PLAVIX [Concomitant]
     Indication: CARDIAC DISORDER
  6. FAMOTIDINE [Concomitant]
     Indication: OESOPHAGITIS

REACTIONS (1)
  - Nausea [Not Recovered/Not Resolved]
